FAERS Safety Report 8118308-5 (Version None)
Quarter: 2012Q1

REPORT INFORMATION
  Report Type: 
  Country: None (occurrence: None)
  Receive Date: 20120207
  Receipt Date: 20120130
  Transmission Date: 20120608
  Serious: Yes (Other)
  Sender: FDA-Public Use
  Company Number: US-PFIZER INC-2012026384

PATIENT
  Sex: Male

DRUGS (1)
  1. TOVIAZ [Suspect]
     Dosage: UNK

REACTIONS (6)
  - URINARY RETENTION [None]
  - PROSTATIC OPERATION [None]
  - INSOMNIA [None]
  - NEOPLASM MALIGNANT [None]
  - CEREBROVASCULAR ACCIDENT [None]
  - SURGERY [None]
